FAERS Safety Report 11680560 (Version 2)
Quarter: 2015Q4

REPORT INFORMATION
  Report Type: Spontaneous
  Country: US (occurrence: US)
  Receive Date: 20151027
  Receipt Date: 20151104
  Transmission Date: 20160304
  Serious: No
  Sender: FDA-Public Use
  Company Number: US-ELI_LILLY_AND_COMPANY-US201008007605

PATIENT
  Age: 57 Year
  Sex: Female

DRUGS (5)
  1. FORTEO [Suspect]
     Active Substance: TERIPARATIDE
     Indication: OSTEOPOROSIS
     Dosage: 20 UG, DAILY (1/D)
     Route: 065
     Dates: start: 201007
  2. FORTEO [Interacting]
     Active Substance: TERIPARATIDE
     Dosage: 20 UG, DAILY (1/D)
     Route: 065
     Dates: end: 20101130
  3. SIMPONI [Interacting]
     Active Substance: GOLIMUMAB
  4. PREDNISONE. [Interacting]
     Active Substance: PREDNISONE
  5. CRESTOR [Interacting]
     Active Substance: ROSUVASTATIN CALCIUM

REACTIONS (22)
  - Vibratory sense increased [Recovered/Resolved]
  - Drug dose omission [Unknown]
  - Hypoaesthesia [Unknown]
  - Medication error [Unknown]
  - Paraesthesia [Unknown]
  - Myalgia [Unknown]
  - Nausea [Unknown]
  - Balance disorder [Recovered/Resolved]
  - Dizziness [Recovered/Resolved]
  - Burning sensation [Recovering/Resolving]
  - Paraesthesia [Recovered/Resolved]
  - Pain in extremity [Recovered/Resolved]
  - Hearing impaired [Unknown]
  - Pain [Recovered/Resolved]
  - Swelling [Recovered/Resolved]
  - Pain in extremity [Unknown]
  - Muscular weakness [Unknown]
  - Drug interaction [Recovered/Resolved]
  - Headache [Unknown]
  - Asthenia [Recovered/Resolved]
  - Muscle spasms [Recovered/Resolved]
  - Gastrooesophageal reflux disease [Not Recovered/Not Resolved]

NARRATIVE: CASE EVENT DATE: 201009
